FAERS Safety Report 4526730-9 (Version None)
Quarter: 2004Q4

REPORT INFORMATION
  Report Type: 
  Country: None (occurrence: None)
  Receive Date: 20041213
  Receipt Date: 20041129
  Transmission Date: 20050328
  Serious: Yes (Other)
  Sender: FDA-Public Use
  Company Number: HQWYE867909DEC04

PATIENT
  Age: 66 Year
  Sex: Male

DRUGS (1)
  1. CORDARONE [Suspect]
     Dosage: 6 G 1X PER 72 HR, INTRAVENOUS
     Route: 042

REACTIONS (1)
  - OPTIC NEUROPATHY [None]
